FAERS Safety Report 16878788 (Version 2)
Quarter: 2020Q4

REPORT INFORMATION
  Report Type: Spontaneous
  Country: CH (occurrence: CH)
  Receive Date: 20191002
  Receipt Date: 20201222
  Transmission Date: 20210113
  Serious: Yes (Other)
  Sender: FDA-Public Use
  Company Number: CH-JNJFOC-20190933286

PATIENT
  Age: 65 Year
  Sex: Male

DRUGS (16)
  1. REVLIMID [Suspect]
     Active Substance: LENALIDOMIDE
     Indication: PRODUCT USED FOR UNKNOWN INDICATION
     Route: 048
     Dates: start: 20180226, end: 20181105
  2. VELCADE [Suspect]
     Active Substance: BORTEZOMIB
     Indication: PRODUCT USED FOR UNKNOWN INDICATION
     Dosage: CYCLICAL
     Route: 042
     Dates: start: 20180226, end: 20181105
  3. DEXAMETHASONE. [Concomitant]
     Active Substance: DEXAMETHASONE
     Dates: start: 20190528, end: 20190807
  4. VALTREX [Concomitant]
     Active Substance: VALACYCLOVIR HYDROCHLORIDE
  5. CALCIMAGON-D3 [Concomitant]
     Active Substance: CALCIUM\CHOLECALCIFEROL
  6. RIOPAN                             /00141701/ [Concomitant]
     Active Substance: MAGALDRATE
     Dosage: AS NECESSARY
  7. FLAGYL [Concomitant]
     Active Substance: METRONIDAZOLE\METRONIDAZOLE HYDROCHLORIDE
     Route: 048
     Dates: start: 20190904
  8. MOXIFLOXACINE [Concomitant]
     Active Substance: MOXIFLOXACIN
     Dates: start: 201908, end: 20190818
  9. NEXIUM [Suspect]
     Active Substance: ESOMEPRAZOLE MAGNESIUM
     Indication: PRODUCT USED FOR UNKNOWN INDICATION
     Route: 048
     Dates: start: 201805, end: 201910
  10. DEXAMETHASONE. [Concomitant]
     Active Substance: DEXAMETHASONE
     Dates: start: 20180226, end: 20181105
  11. IMODIUM [Concomitant]
     Active Substance: LOPERAMIDE HYDROCHLORIDE
     Dosage: AS NECESSARY
  12. CIRCADIN [Concomitant]
     Active Substance: MELATONIN
     Dosage: AS NECESSARY
     Dates: start: 20180824
  13. DARZALEX [Suspect]
     Active Substance: DARATUMUMAB
     Indication: PRODUCT USED FOR UNKNOWN INDICATION
     Route: 042
     Dates: start: 20190528, end: 20190807
  14. MST [Concomitant]
     Dosage: AS NECESSARY
  15. DUODART [Suspect]
     Active Substance: DUTASTERIDE\TAMSULOSIN
     Indication: PRODUCT USED FOR UNKNOWN INDICATION
     Route: 048
     Dates: start: 201803, end: 20190829
  16. CEFTRIAXONE. [Concomitant]
     Active Substance: CEFTRIAXONE
     Dates: start: 20190808, end: 201908

REACTIONS (2)
  - Diarrhoea [Recovered/Resolved]
  - Colitis [Recovered/Resolved]

NARRATIVE: CASE EVENT DATE: 201810
